FAERS Safety Report 9803010 (Version 1)
Quarter: 2014Q1

REPORT INFORMATION
  Report Type: Spontaneous
  Country: US (occurrence: US)
  Receive Date: 20140108
  Receipt Date: 20140108
  Transmission Date: 20141002
  Serious: Yes (Death, Other)
  Sender: FDA-Public Use
  Company Number: US-UCBSA-107880

PATIENT
  Age: 41 Year
  Sex: Male

DRUGS (4)
  1. ALPRAZOLAM [Suspect]
  2. HYDROMORPHONE [Suspect]
  3. CARISOPRODOL [Suspect]
  4. ACETAMINOPHEN/OXYCODONE [Suspect]

REACTIONS (2)
  - Cardio-respiratory arrest [Fatal]
  - Completed suicide [Fatal]
